FAERS Safety Report 9784132 (Version 1)
Quarter: 2013Q4

REPORT INFORMATION
  Report Type: Spontaneous
  Country: CH (occurrence: CH)
  Receive Date: 20131226
  Receipt Date: 20131226
  Transmission Date: 20140711
  Serious: Yes (Other)
  Sender: FDA-Public Use
  Company Number: CH-TEVA-452149ISR

PATIENT
  Age: 38 Year
  Sex: Female
  Weight: 83 kg

DRUGS (4)
  1. GABAPENTIN-MEPHA (NEW FORMULATION) [Suspect]
     Indication: DIABETIC MONONEUROPATHY
     Dosage: 300 MILLIGRAM DAILY;
     Route: 065
     Dates: start: 20131012, end: 20131015
  2. CIPRALEX [Concomitant]
     Indication: PRODUCT USED FOR UNKNOWN INDICATION
     Dosage: 10 MILLIGRAM DAILY; INTAKE SINCE YEARS (DETAILED INFORMATION UNKNOWN)
     Route: 065
  3. TRITTICO [Concomitant]
     Indication: PRODUCT USED FOR UNKNOWN INDICATION
     Dosage: 150 MILLIGRAM DAILY; INTAKE SINCE YEARS (DETAILED INFORMATION UNKNOWN)
     Route: 065
  4. INSULIN [Concomitant]
     Indication: PRODUCT USED FOR UNKNOWN INDICATION
     Dosage: NO DETAILED INFORMATION
     Route: 065

REACTIONS (4)
  - Coordination abnormal [Recovering/Resolving]
  - Aphasia [Recovering/Resolving]
  - Speech disorder [Recovering/Resolving]
  - Dysphemia [Recovering/Resolving]
